FAERS Safety Report 8931844 (Version 2)
Quarter: 2013Q1

REPORT INFORMATION
  Report Type: Spontaneous
  Country: US (occurrence: US)
  Receive Date: 20121128
  Receipt Date: 20130225
  Transmission Date: 20140127
  Serious: Yes (Other)
  Sender: FDA-Public Use
  Company Number: US-ELI_LILLY_AND_COMPANY-US201211006177

PATIENT
  Sex: Female
  Weight: 79.37 kg

DRUGS (6)
  1. HUMALOG LISPRO [Suspect]
     Indication: TYPE 1 DIABETES MELLITUS
     Dosage: 15 U, PRN
     Route: 058
     Dates: start: 201202
  2. HUMALOG LISPRO [Suspect]
     Dosage: 32 U, QD
  3. HUMALOG LISPRO [Suspect]
     Dosage: 42 U, QD
  4. LANTUS [Concomitant]
     Dosage: 24 U, EACH EVENING
  5. JANUMET [Concomitant]
  6. PREDNISONE [Concomitant]

REACTIONS (3)
  - Injection site cellulitis [Recovered/Resolved]
  - Pyrexia [Recovered/Resolved]
  - Injection site bruising [Unknown]
